FAERS Safety Report 18376914 (Version 1)
Quarter: 2020Q4

REPORT INFORMATION
  Report Type: Spontaneous
  Country: DK (occurrence: DK)
  Receive Date: 20201013
  Receipt Date: 20201013
  Transmission Date: 20210114
  Serious: Yes (Hospitalization, Other)
  Sender: FDA-Public Use
  Company Number: DK-GLAXOSMITHKLINE-DK2020GSK196782

PATIENT

DRUGS (3)
  1. TRIMETHOPRIM + SULFAMETHOXAZOL [Suspect]
     Active Substance: SULFAMERAZINE SODIUM\TRIMETHOPRIM
     Indication: BACTERAEMIA
     Dosage: UNK, MIC=0.5 MG L?1
     Route: 048
  2. CEFUROXIME. [Suspect]
     Active Substance: CEFUROXIME
     Indication: BACTERAEMIA
     Dosage: 1.5 G, TID
     Route: 042
  3. CIPROFLOXACIN. [Suspect]
     Active Substance: CIPROFLOXACIN
     Indication: BACTERAEMIA
     Dosage: 400 MG, BID
     Route: 042

REACTIONS (2)
  - Pathogen resistance [Unknown]
  - Drug resistance [Unknown]
